FAERS Safety Report 5197259-2 (Version None)
Quarter: 2006Q4

REPORT INFORMATION
  Report Type: 
  Country: None (occurrence: None)
  Receive Date: 20061227
  Receipt Date: 20061218
  Transmission Date: 20070319
  Serious: Yes (Death)
  Sender: FDA-Public Use
  Company Number: 232840

PATIENT
  Age: 75 Year
  Sex: Female

DRUGS (9)
  1. TENECTEPLASE (TENECTEPLASE) PWDR + SOLVENT, INJECTION SOLN, 50MG [Suspect]
     Indication: ACUTE MYOCARDIAL INFARCTION
     Dosage: 6000 IU, SINGLE, INTRAVENOUS
     Route: 042
     Dates: start: 20051006, end: 20051006
  2. HEPARIN [Concomitant]
  3. CLYCERYL TRINITRATE (NITROGLYCERIN) [Concomitant]
  4. ASPIRIN [Concomitant]
  5. BETA BLOCKERS (BETA BLOCKERS NOS) [Concomitant]
  6. NITRATES (VARIOUS) (NITRATES NOS) [Concomitant]
  7. ACE-INHIBITOR (ANGIOTENSIN-CONVERTING ENZYME INHIBITORS) [Concomitant]
  8. STATINS NOS (STATINS NOS) [Concomitant]
  9. ANTI-PLATELET MEDICATIONS (ANTIPLATELET AGENT NOS) [Concomitant]

REACTIONS (1)
  - DEATH [None]
